FAERS Safety Report 7757954-5 (Version None)
Quarter: 2011Q3

REPORT INFORMATION
  Report Type: 
  Country: None (occurrence: None)
  Receive Date: 20110919
  Receipt Date: 20110909
  Transmission Date: 20111222
  Serious: Yes (Other)
  Sender: FDA-Public Use
  Company Number: BR-BIOGENIDEC-2010BI041119

PATIENT
  Age: 47 Year
  Sex: Female

DRUGS (4)
  1. CLONAZEPAM [Concomitant]
     Indication: SLEEP DISORDER
  2. AVONEX [Suspect]
     Indication: MULTIPLE SCLEROSIS
     Route: 030
     Dates: start: 20090409
  3. CELESTAMINE TAB [Concomitant]
     Indication: RHINITIS
  4. VENLAFAXINE HYDROCHLORIDE [Concomitant]
     Indication: DEPRESSION

REACTIONS (14)
  - ONYCHALGIA [None]
  - ASTHENIA [None]
  - PARAESTHESIA [None]
  - MALAISE [None]
  - LEUKOPENIA [None]
  - MOBILITY DECREASED [None]
  - TOOTHACHE [None]
  - ORAL MUCOSAL DISCOLOURATION [None]
  - PAIN [None]
  - HEADACHE [None]
  - INFLUENZA LIKE ILLNESS [None]
  - FATIGUE [None]
  - HIV INFECTION [None]
  - ANAEMIA [None]
